FAERS Safety Report 12809576 (Version 1)
Quarter: 2016Q4

REPORT INFORMATION
  Report Type: Report from Study
  Country: NZ (occurrence: NZ)
  Receive Date: 20161005
  Receipt Date: 20161005
  Transmission Date: 20170207
  Serious: Yes (Death, Hospitalization, Other)
  Sender: FDA-Public Use
  Company Number: NZ-ROCHE-1222138

PATIENT
  Age: 15 Year
  Sex: Female
  Weight: 48.8 kg

DRUGS (4)
  1. BEVACIZUMAB [Suspect]
     Active Substance: BEVACIZUMAB
     Dosage: RECEIVED ON 03/JAN/2012
     Route: 042
     Dates: start: 20121019
  2. TEMOZOLOMIDE. [Suspect]
     Active Substance: TEMOZOLOMIDE
     Indication: MEDULLOBLASTOMA
     Dosage: 150 MG/M2/DOSE OR 5 MG/KG/DOSE (FOR PATIENTS WITH BSA { 0.5 M2) PO ON DAYS 1-5,LAST DOSE PRIOR TO SA
     Route: 048
     Dates: start: 20121019
  3. BEVACIZUMAB [Suspect]
     Active Substance: BEVACIZUMAB
     Indication: MEDULLOBLASTOMA
     Dosage: LAST DOSE PRIOR TO SAE: 17/JAN/2013
     Route: 042
     Dates: start: 20121019
  4. IRINOTECAN [Suspect]
     Active Substance: IRINOTECAN
     Indication: MEDULLOBLASTOMA
     Dosage: LAST DOSE PRIOR TO SAE: 07/JAN/2013
     Route: 042
     Dates: start: 20121019

REACTIONS (7)
  - Platelet count decreased [Recovered/Resolved]
  - Death [Fatal]
  - Nausea [Unknown]
  - Neutrophil count decreased [Unknown]
  - Anaemia [Unknown]
  - Device related infection [Recovered/Resolved]
  - Febrile neutropenia [Unknown]

NARRATIVE: CASE EVENT DATE: 20130106
